FAERS Safety Report 8009358-8 (Version None)
Quarter: 2011Q4

REPORT INFORMATION
  Report Type: 
  Country: None (occurrence: None)
  Receive Date: 20111221
  Receipt Date: 20111212
  Transmission Date: 20120403
  Serious: Yes (Hospitalization)
  Sender: FDA-Public Use
  Company Number: TCI2011A06569

PATIENT

DRUGS (1)
  1. ACTOS [Suspect]
     Dosage: 30 TAB. (30 TAB., 1 IN 1 D) PER ORAL
     Route: 048

REACTIONS (1)
  - OVERDOSE [None]
